FAERS Safety Report 21993250 (Version 2)
Quarter: 2023Q2

REPORT INFORMATION
  Report Type: Spontaneous
  Country: JP (occurrence: JP)
  Receive Date: 20230215
  Receipt Date: 20230503
  Transmission Date: 20230721
  Serious: Yes (Death, Other)
  Sender: FDA-Public Use
  Company Number: JP-KYOWAKIRIN-2023AKK001748

PATIENT

DRUGS (1)
  1. PEGFILGRASTIM [Suspect]
     Active Substance: PEGFILGRASTIM
     Indication: Neutropenia
     Dosage: 3.6 MILLIGRAM
     Route: 058

REACTIONS (3)
  - Oesophageal carcinoma [Fatal]
  - Therapeutic procedure [Unknown]
  - Off label use [Unknown]

NARRATIVE: CASE EVENT DATE: 20221201
